FAERS Safety Report 5507256-2 (Version None)
Quarter: 2007Q4

REPORT INFORMATION
  Report Type: 
  Country: None (occurrence: None)
  Receive Date: 20071106
  Receipt Date: 20071026
  Transmission Date: 20080405
  Serious: Yes (Other)
  Sender: FDA-Public Use
  Company Number: PHHO2007MX18034

PATIENT
  Age: 77 Year
  Sex: Female

DRUGS (2)
  1. DIOVAN HCT [Suspect]
     Indication: HYPERTENSION
     Dosage: 160/12.5MG DAILY
     Route: 048
     Dates: start: 20050601, end: 20070501
  2. HYGROTON [Concomitant]
     Indication: HYPERTENSION

REACTIONS (3)
  - AGGRESSION [None]
  - DIZZINESS [None]
  - NERVOUS SYSTEM DISORDER [None]
